FAERS Safety Report 9226659 (Version 1)
Quarter: 2013Q2

REPORT INFORMATION
  Report Type: Spontaneous
  Country: US (occurrence: US)
  Receive Date: 20130412
  Receipt Date: 20130412
  Transmission Date: 20140414
  Serious: No
  Sender: FDA-Public Use
  Company Number: US-PFIZER INC-2013113787

PATIENT
  Age: 21 Year
  Sex: Male
  Weight: 67.12 kg

DRUGS (2)
  1. VFEND [Suspect]
     Indication: FUNGAL INFECTION
     Dosage: 200 MG, 2X/DAY
     Route: 048
     Dates: start: 20130401
  2. VFEND [Suspect]
     Indication: PNEUMONIA FUNGAL

REACTIONS (1)
  - Photosensitivity reaction [Recovering/Resolving]
